FAERS Safety Report 24964518 (Version 1)
Quarter: 2025Q1

REPORT INFORMATION
  Report Type: Spontaneous
  Country: CA (occurrence: CA)
  Receive Date: 20250213
  Receipt Date: 20250213
  Transmission Date: 20250408
  Serious: Yes (Death, Hospitalization, Other)
  Sender: CSL BEHRING
  Company Number: CA-BEH-2025195152

PATIENT
  Age: 80 Year
  Sex: Female
  Weight: 69 kg

DRUGS (32)
  1. HUMAN IMMUNOGLOBULIN G [Suspect]
     Active Substance: HUMAN IMMUNOGLOBULIN G
     Indication: Chronic inflammatory demyelinating polyradiculoneuropathy
     Dosage: 20 G, QW
     Route: 058
  2. HUMAN IMMUNOGLOBULIN G [Suspect]
     Active Substance: HUMAN IMMUNOGLOBULIN G
     Route: 058
  3. HUMAN IMMUNOGLOBULIN G [Suspect]
     Active Substance: HUMAN IMMUNOGLOBULIN G
     Dosage: 40 G, QW (SOLUTION FOR INFUSION)
     Route: 065
  4. ACETAMINOPHEN [Concomitant]
     Active Substance: ACETAMINOPHEN
     Route: 065
  5. ALENDRONATE SODIUM [Concomitant]
     Active Substance: ALENDRONATE SODIUM
     Route: 065
  6. ALPHAGAN P [Concomitant]
     Active Substance: BRIMONIDINE TARTRATE
     Route: 065
  7. APIXABAN [Concomitant]
     Active Substance: APIXABAN
     Route: 065
  8. CALCIUM [Concomitant]
     Active Substance: CALCIUM
     Route: 065
  9. CEFAZOLIN [Concomitant]
     Active Substance: CEFAZOLIN
     Route: 065
  10. DICLOFENAC [Concomitant]
     Active Substance: DICLOFENAC
     Route: 065
  11. DILTIAZEM [Concomitant]
     Active Substance: DILTIAZEM
     Route: 065
  12. DOMPERIDONE [Concomitant]
     Active Substance: DOMPERIDONE
     Route: 065
  13. DORZOLAMIDE [Concomitant]
     Active Substance: DORZOLAMIDE
     Route: 065
  14. EPIPEN [Concomitant]
     Active Substance: EPINEPHRINE
     Route: 065
  15. FERROUS GLUCONATE [Concomitant]
     Active Substance: FERROUS GLUCONATE
     Route: 065
  16. FOLIC ACID [Concomitant]
     Active Substance: FOLIC ACID
     Route: 065
  17. GABAPENTIN [Concomitant]
     Active Substance: GABAPENTIN
     Route: 065
  18. ISOPTO TEARS [Concomitant]
     Active Substance: HYPROMELLOSE 2910 (4000 MPA.S)
     Route: 065
  19. LANSOPRAZOLE [Concomitant]
     Active Substance: LANSOPRAZOLE
     Route: 065
  20. LATANOPROST [Concomitant]
     Active Substance: LATANOPROST
     Route: 065
  21. MAGNESIUM HYDROXIDE [Concomitant]
     Active Substance: MAGNESIUM HYDROXIDE
     Route: 065
  22. MELATONIN [Concomitant]
     Active Substance: MELATONIN
     Route: 065
  23. MIRTAZAPINE [Concomitant]
     Active Substance: MIRTAZAPINE
     Route: 065
  24. UNSPECIFIED INGREDIENT [Concomitant]
     Active Substance: UNSPECIFIED INGREDIENT
     Route: 065
  25. POTASSIUM CHLORIDE [Concomitant]
     Active Substance: POTASSIUM CHLORIDE
     Route: 065
  26. PREDNISONE [Concomitant]
     Active Substance: PREDNISONE
     Route: 065
  27. RISPERIDONE [Concomitant]
     Active Substance: RISPERIDONE
     Route: 065
  28. ROBITUSSIN (GUAIFENESIN) [Concomitant]
     Active Substance: GUAIFENESIN
     Route: 065
  29. ALBUTEROL [Concomitant]
     Active Substance: ALBUTEROL
     Route: 065
  30. SALMETEROL [Concomitant]
     Active Substance: SALMETEROL
     Route: 065
  31. SENOKOT [Concomitant]
     Active Substance: SENNOSIDES
     Route: 065
  32. VITAMIN D [Concomitant]
     Active Substance: VITAMIN D NOS
     Route: 065

REACTIONS (5)
  - Pneumonia [Fatal]
  - Product availability issue [Fatal]
  - Sepsis [Fatal]
  - Off label use [Fatal]
  - Off label use [Unknown]
